FAERS Safety Report 8663772 (Version 2)
Quarter: 2012Q4

REPORT INFORMATION
  Report Type: 
  Country: US (occurrence: US)
  Receive Date: 20120713
  Receipt Date: 20120914
  Transmission Date: 20130627
  Serious: Yes (Hospitalization)
  Sender: FDA-Public Use
  Company Number: US-US-EMD SERONO, INC.-7145793

PATIENT
  Age: 64 Year
  Sex: Female

DRUGS (1)
  1. REBIF [Suspect]
     Indication: PRODUCT USED FOR UNKNOWN INDICATION
     Route: 058
     Dates: start: 20040726, end: 201209

REACTIONS (3)
  - Knee arthroplasty [Unknown]
  - Cellulitis [Unknown]
  - Limb reconstructive surgery [Unknown]
